FAERS Safety Report 6619762-8 (Version None)
Quarter: 2010Q1

REPORT INFORMATION
  Report Type: 
  Country: None (occurrence: None)
  Receive Date: 20100309
  Receipt Date: 20100226
  Transmission Date: 20100710
  Serious: Yes (Hospitalization, Other)
  Sender: FDA-Public Use
  Company Number: PHHY2009US53590

PATIENT
  Sex: Female
  Weight: 58.9 kg

DRUGS (2)
  1. EXJADE [Suspect]
     Indication: IRON OVERLOAD
     Dosage: 1250 MG, QD
     Route: 048
     Dates: start: 20091101, end: 20091210
  2. INFLIXIMAB [Suspect]
     Dosage: UNK, UNK
     Route: 065

REACTIONS (3)
  - ASPARTATE AMINOTRANSFERASE INCREASED [None]
  - CROHN'S DISEASE [None]
  - GASTROINTESTINAL DISORDER [None]
